FAERS Safety Report 7500464-0 (Version None)
Quarter: 2011Q2

REPORT INFORMATION
  Report Type: 
  Country: None (occurrence: None)
  Receive Date: 20110524
  Receipt Date: 20110420
  Transmission Date: 20111010
  Serious: No
  Sender: FDA-Public Use
  Company Number: US-BRISTOL-MYERS SQUIBB COMPANY-15665896

PATIENT
  Age: 76 Year
  Sex: Female

DRUGS (18)
  1. LISINOPRIL [Concomitant]
  2. ASPIRIN [Concomitant]
  3. ASCORBIC ACID [Concomitant]
  4. COMBIVENT [Concomitant]
  5. MIRALAX [Concomitant]
  6. GLIPIZIDE [Concomitant]
  7. GARLIC [Concomitant]
  8. ONGLYZA [Suspect]
     Indication: TYPE 2 DIABETES MELLITUS
     Dosage: STOPPED IN BETWEEN FOR 2 WEEKS,RESTARTED AND AGAIN STOPPED 3 WEEKS AGO,PILL
     Route: 048
     Dates: start: 20110203, end: 20110101
  9. MULTI-VITAMINS [Concomitant]
  10. TYLENOL (CAPLET) [Concomitant]
  11. QVAR 40 [Concomitant]
  12. METFORMIN HCL [Concomitant]
  13. CLONIDINE [Concomitant]
  14. GEMFIBROZIL [Concomitant]
  15. NORVASC [Concomitant]
  16. INSULIN [Concomitant]
  17. METOPROLOL [Concomitant]
  18. CALCIUM CARBONATE [Concomitant]

REACTIONS (2)
  - CONSTIPATION [None]
  - NIGHTMARE [None]
